FAERS Safety Report 5049790-8 (Version None)
Quarter: 2006Q3

REPORT INFORMATION
  Report Type: 
  Country: None (occurrence: None)
  Receive Date: 20060706
  Receipt Date: 20060626
  Transmission Date: 20061208
  Serious: Yes (Other)
  Sender: FDA-Public Use
  Company Number: 2006080743

PATIENT
  Age: 53 Year
  Sex: Female
  Weight: 85.7298 kg

DRUGS (2)
  1. ZOLOFT [Suspect]
     Indication: DEPRESSION
     Dosage: 200 MG, ORAL
     Route: 048
     Dates: start: 19990101
  2. TRIAMTERENE (TRIAMTERENE) [Concomitant]

REACTIONS (7)
  - BLOOD PRESSURE DECREASED [None]
  - CONVULSION [None]
  - FEELING ABNORMAL [None]
  - HEAD DISCOMFORT [None]
  - HEADACHE [None]
  - INTERCEPTED DRUG DISPENSING ERROR [None]
  - MALAISE [None]
